FAERS Safety Report 20736153 (Version 1)
Quarter: 2022Q2

REPORT INFORMATION
  Report Type: Spontaneous
  Country: US (occurrence: None)
  Receive Date: 20220421
  Receipt Date: 20220421
  Transmission Date: 20220721
  Serious: Yes (Other)
  Sender: FDA-Public Use
  Company Number: US-ROCHE-3074288

PATIENT

DRUGS (1)
  1. ACTEMRA [Suspect]
     Active Substance: TOCILIZUMAB
     Indication: Vasculitis
     Dosage: ONGOING: YES
     Route: 065

REACTIONS (3)
  - Cerebrovascular accident [Unknown]
  - Off label use [Unknown]
  - Ill-defined disorder [Not Recovered/Not Resolved]
